FAERS Safety Report 8799416 (Version 1)
Quarter: 2012Q4

REPORT INFORMATION
  Report Type: 
  Country: JP (occurrence: JP)
  Receive Date: 20120919
  Receipt Date: 20120919
  Transmission Date: 20130627
  Serious: Yes (Other)
  Sender: FDA-Public Use
  Company Number: JP-009507513-1209JPN005253

PATIENT

DRUGS (9)
  1. PEGINTRON [Suspect]
     Indication: HEPATITIS C
     Dosage: 1.5 Microgram per kilogram, qw
     Route: 058
     Dates: start: 20120627, end: 20120703
  2. PEGINTRON [Suspect]
     Dosage: 1.2 Microgram per kilogram, qw
     Route: 058
     Dates: start: 20120704, end: 20120710
  3. PEGINTRON [Suspect]
     Dosage: 1.0 Microgram per kilogram, qw
     Route: 058
     Dates: start: 20120711
  4. REBETOL [Suspect]
     Indication: HEPATITIS C
     Dosage: 400 mg, qd
     Route: 048
     Dates: start: 20120627
  5. TELAVIC [Suspect]
     Indication: HEPATITIS C
     Dosage: 1500 mg, qd
     Route: 048
     Dates: start: 20120627, end: 20120717
  6. TELAVIC [Suspect]
     Dosage: 1000 mg, qd
     Route: 048
     Dates: start: 20120718, end: 20120731
  7. TELAVIC [Suspect]
     Dosage: 500 mg, qd
     Route: 048
     Dates: start: 20120801
  8. ALDACTONE A [Concomitant]
     Indication: HEPATIC CIRRHOSIS
     Route: 048
  9. LIVACT [Concomitant]
     Indication: HEPATIC CIRRHOSIS
     Dosage: 12.45 g, qd
     Route: 048

REACTIONS (1)
  - Anaemia [Not Recovered/Not Resolved]
